FAERS Safety Report 8186641-7 (Version None)
Quarter: 2012Q1

REPORT INFORMATION
  Report Type: 
  Country: None (occurrence: None)
  Receive Date: 20120302
  Receipt Date: 20120302
  Transmission Date: 20120608
  Serious: Yes (Hospitalization)
  Sender: FDA-Public Use
  Company Number: None

PATIENT
  Sex: Male
  Weight: 90.49 kg

DRUGS (1)
  1. GEMCITABINE HYDROCHLORIDE [Suspect]
     Dosage: 5880 MG
     Dates: end: 20120123

REACTIONS (5)
  - PLEURAL EFFUSION [None]
  - ENTEROBACTER TEST POSITIVE [None]
  - ENTEROCOCCUS TEST POSITIVE [None]
  - PNEUMOTHORAX [None]
  - ATELECTASIS [None]
